FAERS Safety Report 18378867 (Version 1)
Quarter: 2020Q4

REPORT INFORMATION
  Report Type: Spontaneous
  Country: US (occurrence: US)
  Receive Date: 20201013
  Receipt Date: 20201013
  Transmission Date: 20210114
  Serious: No
  Sender: FDA-Public Use
  Company Number: US-JNJFOC-20201013478

PATIENT
  Age: 66 Year
  Sex: Female
  Weight: 77.18 kg

DRUGS (1)
  1. ZYRTEC [Suspect]
     Active Substance: CETIRIZINE HYDROCHLORIDE
     Indication: MULTIPLE ALLERGIES
     Dosage: START DATE - A MONTH PRIOR TO REPORT; LAST ADMIN DATE: 7-OCT-2020
     Route: 048
     Dates: start: 202009

REACTIONS (1)
  - Drug ineffective [Unknown]
